FAERS Safety Report 4482130-1 (Version None)
Quarter: 2004Q4

REPORT INFORMATION
  Report Type: 
  Country: None (occurrence: None)
  Receive Date: 20041022
  Receipt Date: 20041013
  Transmission Date: 20050328
  Serious: Yes (Hospitalization)
  Sender: FDA-Public Use
  Company Number: DE-BRISTOL-MYERS SQUIBB COMPANY-12731261

PATIENT
  Age: 50 Year
  Sex: Male
  Weight: 90 kg

DRUGS (11)
  1. PRAVASIN TABS 20 MG [Suspect]
     Indication: HYPERLIPIDAEMIA
     Route: 048
     Dates: start: 19990101
  2. NOVONORM [Interacting]
     Indication: DIABETES MELLITUS
     Route: 048
     Dates: start: 20040301
  3. SPIRONOLACTONE [Interacting]
     Indication: HYPERTENSION
     Route: 048
     Dates: start: 19990101
  4. FALITHROM [Interacting]
     Indication: ATRIAL FIBRILLATION
     Route: 048
  5. FENOFIBRATE [Interacting]
     Indication: HYPERLIPIDAEMIA
     Route: 048
     Dates: start: 20040301, end: 20040407
  6. ZOCOR [Interacting]
     Indication: HYPERLIPIDAEMIA
     Route: 048
     Dates: start: 19990101, end: 20040407
  7. DIGITOXIN [Concomitant]
     Indication: ATRIAL FIBRILLATION
     Route: 048
     Dates: start: 19990101
  8. LASIX [Concomitant]
     Indication: HYPERTENSION
     Route: 048
     Dates: start: 19990101, end: 20040409
  9. QUERTO [Concomitant]
     Indication: ATRIAL FIBRILLATION
     Route: 048
     Dates: start: 19990101
  10. TETRA-GELOMYRTOL [Concomitant]
     Indication: SINUSITIS
     Dosage: 300 MG MYRTOL, 250 MG OXYTETRACYCLINE
     Route: 048
     Dates: start: 20040322, end: 20040402
  11. UDRIK [Concomitant]
     Indication: HYPERLIPIDAEMIA
     Route: 048
     Dates: start: 19990101, end: 20040407

REACTIONS (2)
  - DRUG INTERACTION [None]
  - TRANSAMINASES INCREASED [None]
